FAERS Safety Report 10264336 (Version 1)
Quarter: 2014Q2

REPORT INFORMATION
  Report Type: Spontaneous
  Country: CN (occurrence: CN)
  Receive Date: 20140627
  Receipt Date: 20140627
  Transmission Date: 20141212
  Serious: Yes (Other)
  Sender: FDA-Public Use
  Company Number: CN-JNJFOC-20140612407

PATIENT
  Age: 46 Year
  Sex: Male

DRUGS (3)
  1. DUROGESIC D-TRANS [Suspect]
     Indication: HEPATIC CANCER
     Route: 062
     Dates: start: 20140611
  2. DUROGESIC D-TRANS [Suspect]
     Indication: HEPATIC CANCER
     Route: 062
     Dates: start: 201404
  3. TRAMADOL HYDROCHLORIDE [Concomitant]
     Route: 065

REACTIONS (2)
  - Coma hepatic [Unknown]
  - Off label use [Unknown]
